FAERS Safety Report 15836080 (Version 1)
Quarter: 2018Q4

REPORT INFORMATION
  Report Type: Spontaneous
  Country: US (occurrence: US)
  Receive Date: 20181221
  Receipt Date: 20181221
  Transmission Date: 20190205
  Serious: Yes (Hospitalization)
  Sender: FDA-Public Use
  Company Number: None

PATIENT
  Age: 87 Year
  Sex: Male

DRUGS (1)
  1. RASBURICASE [Suspect]
     Active Substance: RASBURICASE
     Route: 042
     Dates: start: 20181028, end: 20181028

REACTIONS (4)
  - Tremor [None]
  - Infusion related reaction [None]
  - Chest pain [None]
  - Rash [None]

NARRATIVE: CASE EVENT DATE: 20181218
